FAERS Safety Report 6273800-3 (Version None)
Quarter: 2009Q3

REPORT INFORMATION
  Report Type: 
  Country: None (occurrence: None)
  Receive Date: 20090720
  Receipt Date: 20090710
  Transmission Date: 20100115
  Serious: Yes (Hospitalization)
  Sender: FDA-Public Use
  Company Number: B0583971A

PATIENT
  Sex: Male

DRUGS (7)
  1. EPZICOM [Suspect]
     Indication: HIV INFECTION
     Route: 048
     Dates: start: 20080225
  2. NORVIR [Suspect]
     Indication: HIV INFECTION
     Route: 048
     Dates: start: 20080225
  3. REYATAZ [Suspect]
     Indication: HIV INFECTION
     Route: 048
     Dates: start: 20080225
  4. OLMETEC [Concomitant]
     Indication: CARDIAC VALVE DISEASE
     Dosage: 20MG PER DAY
     Route: 048
  5. HERBESSER R [Concomitant]
     Indication: CARDIAC VALVE DISEASE
     Dosage: 100MG PER DAY
     Route: 048
  6. WARFARIN SODIUM [Concomitant]
     Indication: CARDIAC VALVE DISEASE
     Dosage: 1.2MG PER DAY
     Route: 048
  7. PARAMIDIN [Concomitant]
     Indication: CARDIAC VALVE DISEASE
     Dosage: 300MG PER DAY
     Route: 048

REACTIONS (1)
  - CEREBRAL INFARCTION [None]
